FAERS Safety Report 9745645 (Version 2)
Quarter: 2013Q4

REPORT INFORMATION
  Report Type: Spontaneous
  Country: ES (occurrence: ES)
  Receive Date: 20131211
  Receipt Date: 20131212
  Transmission Date: 20140711
  Serious: Yes (Other)
  Sender: FDA-Public Use
  Company Number: ES-VERTEX PHARMACEUTICALS INC-2013-011674

PATIENT
  Sex: 0

DRUGS (3)
  1. INCIVO [Suspect]
     Indication: CHRONIC HEPATITIS C
     Dosage: UNK, BID
     Route: 048
  2. RIBAVIRIN [Suspect]
     Indication: CHRONIC HEPATITIS C
     Dosage: UNK
     Route: 065
  3. PEG INTERFERON [Suspect]
     Indication: CHRONIC HEPATITIS C
     Dosage: UNK
     Route: 065

REACTIONS (1)
  - Drug intolerance [Unknown]
